FAERS Safety Report 9412226 (Version 2)
Quarter: 2013Q3

REPORT INFORMATION
  Report Type: Spontaneous
  Country: FR (occurrence: FR)
  Receive Date: 20130722
  Receipt Date: 20130805
  Transmission Date: 20140515
  Serious: Yes (Other)
  Sender: FDA-Public Use
  Company Number: FR-PFIZER INC-2013206005

PATIENT
  Sex: Male

DRUGS (4)
  1. XALATAN [Suspect]
     Dosage: UNK
     Dates: start: 20130505, end: 201307
  2. LEXOMIL [Concomitant]
     Dosage: UNK
  3. TRUSOPT [Concomitant]
     Dosage: UNK
  4. OPATANOL [Concomitant]
     Dosage: UNK

REACTIONS (2)
  - Palpitations [Recovering/Resolving]
  - Chest pain [Recovering/Resolving]
